FAERS Safety Report 8382943-X (Version None)
Quarter: 2012Q2

REPORT INFORMATION
  Report Type: 
  Country: None (occurrence: None)
  Receive Date: 20120524
  Receipt Date: 20120510
  Transmission Date: 20120825
  Serious: Yes (Other)
  Sender: FDA-Public Use
  Company Number: US-JNJFOC-20120510918

PATIENT

DRUGS (9)
  1. PREDNISONE [Suspect]
     Indication: B-CELL LYMPHOMA
     Route: 048
  2. OFATUMUMAB [Suspect]
     Route: 042
  3. GLUCOCORTICOIDS [Concomitant]
     Route: 065
  4. OFATUMUMAB [Suspect]
     Indication: B-CELL LYMPHOMA
     Route: 042
  5. CYTOXAN [Suspect]
     Indication: B-CELL LYMPHOMA
     Route: 042
  6. CETIRIZINE [Concomitant]
     Route: 065
  7. ACETAMINOPHEN [Concomitant]
     Route: 065
  8. DOXORUBICIN HCL [Suspect]
     Indication: B-CELL LYMPHOMA
     Route: 042
  9. VINCRISTINE [Suspect]
     Indication: B-CELL LYMPHOMA
     Route: 042

REACTIONS (1)
  - CANDIDIASIS [None]
